FAERS Safety Report 18371057 (Version 2)
Quarter: 2020Q4

REPORT INFORMATION
  Report Type: Spontaneous
  Country: US (occurrence: US)
  Receive Date: 20201012
  Receipt Date: 20201023
  Transmission Date: 20210114
  Serious: No
  Sender: FDA-Public Use
  Company Number: US-BAUSCH-BL-2020-028660

PATIENT
  Sex: Female

DRUGS (1)
  1. PIMECROLIMUS CREAM 1% [Suspect]
     Active Substance: PIMECROLIMUS
     Indication: SKIN IRRITATION
     Route: 065
     Dates: start: 2018

REACTIONS (2)
  - Disease recurrence [Unknown]
  - Skin irritation [Unknown]
